FAERS Safety Report 13967400 (Version 1)
Quarter: 2017Q3

REPORT INFORMATION
  Report Type: Spontaneous
  Country: US (occurrence: US)
  Receive Date: 20170914
  Receipt Date: 20170914
  Transmission Date: 20171128
  Serious: Yes (Other)
  Sender: FDA-Public Use
  Company Number: None

PATIENT
  Age: 85 Year
  Sex: Female
  Weight: 64.8 kg

DRUGS (7)
  1. LETROZOLE. [Suspect]
     Active Substance: LETROZOLE
     Indication: BREAST CANCER
     Route: 048
     Dates: start: 20160401, end: 20170906
  2. IBRANCE [Suspect]
     Active Substance: PALBOCICLIB
     Indication: BREAST CANCER
     Route: 048
     Dates: start: 20160401, end: 20170906
  3. FISH OIL [Concomitant]
     Active Substance: FISH OIL
  4. COQ10 [Concomitant]
     Active Substance: UBIDECARENONE
  5. METOPROLOL. [Concomitant]
     Active Substance: METOPROLOL
  6. DETROL [Concomitant]
     Active Substance: TOLTERODINE TARTRATE
  7. ASPIRIN. [Concomitant]
     Active Substance: ASPIRIN

REACTIONS (1)
  - Disease progression [None]
